FAERS Safety Report 6482824-2 (Version None)
Quarter: 2009Q4

REPORT INFORMATION
  Report Type: 
  Country: None (occurrence: None)
  Receive Date: 20091209
  Receipt Date: 20091201
  Transmission Date: 20100525
  Serious: Yes (Hospitalization, Other)
  Sender: FDA-Public Use
  Company Number: US-JNJFOC-20091101981

PATIENT
  Sex: Female

DRUGS (2)
  1. LEVAQUIN [Suspect]
     Indication: UPPER RESPIRATORY TRACT INFECTION
     Route: 048
     Dates: start: 20090926
  2. SINGULAIR [Concomitant]
     Route: 065

REACTIONS (9)
  - ABDOMINAL PAIN [None]
  - ASTHENIA [None]
  - DIZZINESS [None]
  - DOCUMENTED HYPERSENSITIVITY TO ADMINISTERED DRUG [None]
  - DYSPNOEA [None]
  - LOSS OF CONSCIOUSNESS [None]
  - NAUSEA [None]
  - PRESYNCOPE [None]
  - VOMITING [None]
